FAERS Safety Report 10214087 (Version 3)
Quarter: 2014Q2

REPORT INFORMATION
  Report Type: Spontaneous
  Country: US (occurrence: US)
  Receive Date: 20140603
  Receipt Date: 20140627
  Transmission Date: 20141212
  Serious: Yes (Life-Threatening, Hospitalization, Other)
  Sender: FDA-Public Use
  Company Number: US-JNJFOC-20140517575

PATIENT
  Age: 86 Year
  Sex: Male
  Weight: 68.4 kg

DRUGS (14)
  1. XARELTO [Suspect]
     Indication: CEREBROVASCULAR ACCIDENT PROPHYLAXIS
     Route: 048
     Dates: start: 20131207, end: 20140314
  2. XARELTO [Suspect]
     Indication: ATRIAL FIBRILLATION
     Route: 048
     Dates: start: 20131207, end: 20140314
  3. XARELTO [Suspect]
     Indication: THROMBOSIS PROPHYLAXIS
     Route: 048
     Dates: start: 20131207, end: 20140314
  4. ASPIRIN [Suspect]
     Indication: PRODUCT USED FOR UNKNOWN INDICATION
     Route: 065
     Dates: start: 20140314
  5. POTASSIUM CHLORIDE [Concomitant]
     Route: 065
  6. TYLENOL ARTHRITIS [Concomitant]
     Route: 065
  7. LASIX [Concomitant]
     Route: 048
  8. JANUVIA [Concomitant]
     Route: 065
     Dates: start: 20140325
  9. JANUVIA [Concomitant]
     Route: 065
  10. INSULIN ASPART [Concomitant]
     Indication: ACUTE CORONARY SYNDROME
     Route: 065
  11. DIGOXIN [Concomitant]
     Dosage: DAILY
     Route: 065
  12. SIMVASTATIN [Concomitant]
     Route: 065
     Dates: start: 20140325
  13. METOPROLOL-TARTRATE [Concomitant]
     Route: 065
  14. INSULIN [Concomitant]
     Route: 065

REACTIONS (9)
  - Subdural haematoma [Recovering/Resolving]
  - Fall [Unknown]
  - Pleural effusion [Unknown]
  - Blood urea increased [Unknown]
  - Prothrombin time prolonged [Unknown]
  - Blood glucose increased [Unknown]
  - Haematocrit decreased [Unknown]
  - Blood creatinine increased [Recovering/Resolving]
  - International normalised ratio increased [Recovering/Resolving]
